FAERS Safety Report 21082840 (Version 2)
Quarter: 2022Q3

REPORT INFORMATION
  Report Type: Spontaneous
  Country: AU (occurrence: AU)
  Receive Date: 20220714
  Receipt Date: 20220916
  Transmission Date: 20221027
  Serious: Yes (Hospitalization)
  Sender: FDA-Public Use
  Company Number: AU-MYLANLABS-2022M1077499

PATIENT
  Age: 29 Year
  Sex: Male

DRUGS (9)
  1. CLOZARIL [Suspect]
     Active Substance: CLOZAPINE
     Indication: Schizophrenia
     Dosage: 500 MILLIGRAM, QD
     Route: 048
     Dates: start: 20210928
  2. CLONAZEPAM [Concomitant]
     Active Substance: CLONAZEPAM
     Indication: Mania
     Dosage: 3 MILLIGRAM, QD
     Route: 065
     Dates: start: 20220711
  3. PANTOPRAZOLE [Concomitant]
     Active Substance: PANTOPRAZOLE
     Indication: Gastrooesophageal reflux disease
     Dosage: 40 MILLIGRAM, AM (MANE)
     Route: 065
     Dates: start: 20220510
  4. CHOLECALCIFEROL [Concomitant]
     Active Substance: CHOLECALCIFEROL
     Indication: Vitamin D decreased
     Dosage: 1000 INTERNATIONAL UNIT, QD
     Route: 065
     Dates: start: 20220617
  5. LITHIUM [Concomitant]
     Active Substance: LITHIUM
     Indication: Mania
     Dosage: 765 MILLIGRAM, QD 675 MG MANE + 90 MG NOCTE
     Route: 065
     Dates: start: 20220422
  6. DOCUSATE SODIUM\SENNOSIDES A AND B [Concomitant]
     Active Substance: DOCUSATE SODIUM\SENNOSIDES A AND B
     Indication: Constipation
     Dosage: 2 DOSAGE FORM, BID (2 TABS BD)
     Route: 065
     Dates: start: 20210524
  7. LACTULOSE [Concomitant]
     Active Substance: LACTULOSE
     Indication: Constipation
     Dosage: 20 MILLILITER, TID
     Route: 065
     Dates: start: 20210923
  8. MOVICOL [Concomitant]
     Active Substance: POLYETHYLENE GLYCOL 3350\POTASSIUM CHLORIDE\SODIUM BICARBONATE\SODIUM CHLORIDE
     Indication: Constipation
     Dosage: UNK, PRN (2 SACHET BD PRN + 8 SACHET PRN)
     Route: 065
     Dates: start: 20211117
  9. BISACODYL [Concomitant]
     Active Substance: BISACODYL
     Dosage: UNK, PRN
     Route: 065
     Dates: start: 20220318

REACTIONS (2)
  - Mental disorder [Unknown]
  - COVID-19 [Recovered/Resolved]

NARRATIVE: CASE EVENT DATE: 20220710
